FAERS Safety Report 8605967-3 (Version None)
Quarter: 2012Q3

REPORT INFORMATION
  Report Type: 
  Country: None (occurrence: None)
  Receive Date: 20120820
  Receipt Date: 20120809
  Transmission Date: 20120928
  Serious: Yes (Other)
  Sender: FDA-Public Use
  Company Number: US-ASTRAZENECA-2012SE56523

PATIENT
  Age: 52 Year
  Sex: Female

DRUGS (1)
  1. FASLODEX [Suspect]
     Route: 030

REACTIONS (5)
  - DRUG DOSE OMISSION [None]
  - NEOPLASM MALIGNANT [None]
  - ADVERSE EVENT [None]
  - PANIC ATTACK [None]
  - EMOTIONAL DISTRESS [None]
